FAERS Safety Report 23566119 (Version 1)
Quarter: 2024Q1

REPORT INFORMATION
  Report Type: Spontaneous
  Country: US (occurrence: None)
  Receive Date: 20240226
  Receipt Date: 20240226
  Transmission Date: 20240410
  Serious: Yes (Hospitalization)
  Sender: FDA-Public Use
  Company Number: None

PATIENT
  Sex: Female

DRUGS (11)
  1. LENALIDOMIDE [Suspect]
     Active Substance: LENALIDOMIDE
     Indication: Plasma cell myeloma
     Dosage: OTHER FREQUENCY : QD 21D ON, 7 D OFF;?
     Route: 048
  2. ACETAMINOPHEN [Concomitant]
     Active Substance: ACETAMINOPHEN
  3. ALBUTEROL AER HFA [Concomitant]
  4. ASCORBIC ACD POW [Concomitant]
  5. ASPIRIN CHW [Concomitant]
  6. CYANOCOBAL POW [Concomitant]
  7. FLONAS ALGY SPR [Concomitant]
  8. IMODIUM MS RELIEF [Concomitant]
  9. MAGNESIUM-OX [Concomitant]
  10. VITAMINS [Concomitant]
     Active Substance: VITAMINS
  11. ONDANSETRON [Concomitant]
     Active Substance: ONDANSETRON

REACTIONS (1)
  - Fall [None]
